FAERS Safety Report 7520054-3 (Version None)
Quarter: 2011Q2

REPORT INFORMATION
  Report Type: 
  Country: None (occurrence: None)
  Receive Date: 20110602
  Receipt Date: 20110524
  Transmission Date: 20111010
  Serious: Yes (Other)
  Sender: FDA-Public Use
  Company Number: CHPA2011US07313

PATIENT
  Age: 58 Year
  Sex: Female
  Weight: 104.31 kg

DRUGS (5)
  1. PREVACID 24 HR [Suspect]
     Indication: ULCER
     Dosage: 1 OR 2 CAPSULES, QD
     Route: 048
     Dates: start: 20080101
  2. PREVACID 24 HR [Suspect]
     Indication: HELICOBACTER GASTRITIS
  3. TRAZODONE HCL [Concomitant]
     Indication: MUSCLE SPASMS
  4. PRAMIPEXOLE DIHYDROCHLORIDE [Concomitant]
     Indication: RESTLESS LEGS SYNDROME
     Dosage: 0.5 MG, QHS
     Route: 048
     Dates: start: 20070101
  5. TRAZODONE HCL [Concomitant]
     Indication: INSOMNIA
     Dosage: 2 DF, QHS
     Route: 048

REACTIONS (7)
  - ANXIETY [None]
  - INCORRECT DRUG ADMINISTRATION DURATION [None]
  - FIBROMYALGIA [None]
  - OFF LABEL USE [None]
  - EAR INFECTION [None]
  - OVERDOSE [None]
  - DEPRESSION [None]
